FAERS Safety Report 5249581-9 (Version None)
Quarter: 2007Q1

REPORT INFORMATION
  Report Type: 
  Country: None (occurrence: None)
  Receive Date: 20070228
  Receipt Date: 20060316
  Transmission Date: 20070707
  Serious: No
  Sender: FDA-Public Use
  Company Number: S2006US04066

PATIENT
  Sex: Female

DRUGS (2)
  1. IMITREX [Suspect]
     Indication: MIGRAINE
  2. CAFERGOT [Concomitant]
     Indication: MIGRAINE
     Route: 054
     Dates: start: 19680101

REACTIONS (1)
  - DRUG INEFFECTIVE [None]
